FAERS Safety Report 5026151-9 (Version None)
Quarter: 2006Q2

REPORT INFORMATION
  Report Type: 
  Country: None (occurrence: None)
  Receive Date: 20060608
  Receipt Date: 20020509
  Transmission Date: 20061013
  Serious: No
  Sender: FDA-Public Use
  Company Number: 2002-05-0716

PATIENT
  Sex: Male
  Weight: 99 kg

DRUGS (6)
  1. ETHYOL [Suspect]
     Indication: ADVERSE DRUG REACTION
     Dosage: SUBCUTANEOUS
     Route: 058
     Dates: start: 20020124, end: 20020225
  2. RADIATION THERAPY [Suspect]
     Indication: NEOPLASM MALIGNANT
     Dosage: OTHER
  3. GLUCOPHAGE [Concomitant]
  4. VASOTEC [Concomitant]
  5. DURAGESIC-100 [Concomitant]
  6. COMPAZINE [Concomitant]

REACTIONS (3)
  - DYSPHAGIA [None]
  - ORAL INTAKE REDUCED [None]
  - SALIVARY HYPERSECRETION [None]
